FAERS Safety Report 14036728 (Version 3)
Quarter: 2017Q4

REPORT INFORMATION
  Report Type: Spontaneous
  Country: US (occurrence: US)
  Receive Date: 20171003
  Receipt Date: 20171025
  Transmission Date: 20180321
  Serious: Yes (Other)
  Sender: FDA-Public Use
  Company Number: US-AMGEN-USASP2017147099

PATIENT
  Age: 60 Year
  Sex: Female

DRUGS (4)
  1. WARFARIN [Concomitant]
     Active Substance: WARFARIN
     Dosage: UNK
  2. LYRICA [Concomitant]
     Active Substance: PREGABALIN
     Dosage: UNK
  3. AMLODIPINE [Concomitant]
     Active Substance: AMLODIPINE BESYLATE
     Dosage: UNK
  4. ENBREL [Suspect]
     Active Substance: ETANERCEPT
     Indication: PSORIATIC ARTHROPATHY
     Dosage: UNK
     Route: 065
     Dates: start: 20170919, end: 20170928

REACTIONS (17)
  - Sluggishness [Unknown]
  - Peripheral swelling [Unknown]
  - Anxiety [Unknown]
  - Rash [Unknown]
  - Surgery [Unknown]
  - Nausea [Unknown]
  - Painful respiration [Unknown]
  - Pain [Unknown]
  - Musculoskeletal stiffness [Unknown]
  - Asthenia [Unknown]
  - Arthralgia [Unknown]
  - Abdominal pain [Unknown]
  - Mobility decreased [Unknown]
  - Pain in extremity [Unknown]
  - Bradyphrenia [Unknown]
  - Urticaria [Unknown]
  - Dyspnoea [Recovering/Resolving]

NARRATIVE: CASE EVENT DATE: 201709
